FAERS Safety Report 14568574 (Version 2)
Quarter: 2018Q1

REPORT INFORMATION
  Report Type: Report from Study
  Country: CL (occurrence: CL)
  Receive Date: 20180223
  Receipt Date: 20180319
  Transmission Date: 20180509
  Serious: Yes (Life-Threatening, Hospitalization, Other)
  Sender: FDA-Public Use
  Company Number: CL-UCBSA-2018007375

PATIENT
  Age: 70 Year
  Sex: Female

DRUGS (14)
  1. ATORVASTATIN [Suspect]
     Active Substance: ATORVASTATIN
     Indication: DYSLIPIDAEMIA
     Dosage: 4 MG, 2X/DAY (BID)
  2. PRAMIPEXOLE. [Concomitant]
     Active Substance: PRAMIPEXOLE
     Indication: PARKINSON^S DISEASE
     Dosage: 1 DF, 2X/DAY (BID)
     Route: 048
  3. ASPIRIN. [Suspect]
     Active Substance: ASPIRIN
     Indication: CEREBROVASCULAR ACCIDENT
     Dosage: UNK
     Dates: end: 201601
  4. CLONAZEPAM. [Concomitant]
     Active Substance: CLONAZEPAM
     Indication: PRODUCT USED FOR UNKNOWN INDICATION
     Dosage: 1 MG, ONCE DAILY (QD)
  5. ROTIGOTINE [Suspect]
     Active Substance: ROTIGOTINE
     Indication: PARKINSON^S DISEASE
     Dosage: 2 MG, ONCE DAILY (QD)
     Route: 062
     Dates: start: 20151108, end: 20160601
  6. PROLOPA [Concomitant]
     Active Substance: BENSERAZIDE\LEVODOPA
     Indication: PARKINSON^S DISEASE
     Dosage: 200/50 MG
     Route: 048
  7. ROTIGOTINE [Suspect]
     Active Substance: ROTIGOTINE
     Dosage: 8 MG, ONCE DAILY (QD)
     Route: 062
     Dates: start: 201708
  8. ASPIRIN. [Suspect]
     Active Substance: ASPIRIN
     Dosage: DOSE 8 MG
     Dates: start: 201708
  9. PRAMIPEXOLE. [Concomitant]
     Active Substance: PRAMIPEXOLE
     Indication: HYPERTENSION
  10. ROTIGOTINE [Suspect]
     Active Substance: ROTIGOTINE
     Dosage: 4 MG, ONCE DAILY (QD)
     Route: 062
     Dates: start: 20160602, end: 201708
  11. VENLAFAXINE [Concomitant]
     Active Substance: VENLAFAXINE HYDROCHLORIDE
     Indication: DEPRESSION
     Dosage: 200/50 MG, ONCE DAILY (QD)
     Route: 048
  12. OMEPRAZOLE. [Concomitant]
     Active Substance: OMEPRAZOLE
     Indication: PRODUCT USED FOR UNKNOWN INDICATION
     Dosage: 20 MG, ONCE DAILY (QD)
     Route: 048
  13. LATANOPROST. [Concomitant]
     Active Substance: LATANOPROST
     Indication: PRODUCT USED FOR UNKNOWN INDICATION
     Dosage: ONE DROP IN EACH EYE, ONCE DAILY (QD)
     Route: 047
  14. GABAPENTIN. [Concomitant]
     Active Substance: GABAPENTIN
     Indication: PRODUCT USED FOR UNKNOWN INDICATION
     Dosage: 300 MG, 2X/DAY (BID)

REACTIONS (4)
  - Hemiparesis [Not Recovered/Not Resolved]
  - Speech disorder [Recovered/Resolved with Sequelae]
  - Dysarthria [Recovered/Resolved with Sequelae]
  - Cerebrovascular accident [Recovered/Resolved with Sequelae]

NARRATIVE: CASE EVENT DATE: 20180203
